FAERS Safety Report 7311485-5 (Version None)
Quarter: 2011Q1

REPORT INFORMATION
  Report Type: 
  Country: None (occurrence: None)
  Receive Date: 20110224
  Receipt Date: 20110211
  Transmission Date: 20110831
  Serious: Yes (Other)
  Sender: FDA-Public Use
  Company Number: PHHY2011US11591

PATIENT
  Sex: Male

DRUGS (5)
  1. DITROPAN [Concomitant]
  2. LEXAPRO [Concomitant]
  3. AFINITOR [Suspect]
     Indication: ASTROCYTOMA
     Dosage: 10 MG, DAILY
     Route: 048
     Dates: start: 20110129
  4. CARBATROL [Concomitant]
  5. RISPERDAL [Concomitant]

REACTIONS (5)
  - FOOT FRACTURE [None]
  - PAIN IN EXTREMITY [None]
  - FATIGUE [None]
  - CONVULSION [None]
  - FALL [None]
